FAERS Safety Report 5507242-2 (Version None)
Quarter: 2007Q4

REPORT INFORMATION
  Report Type: 
  Country: None (occurrence: None)
  Receive Date: 20071105
  Receipt Date: 20071105
  Transmission Date: 20080405
  Serious: Yes (Hospitalization)
  Sender: FDA-Public Use
  Company Number: None

PATIENT
  Sex: Male
  Weight: 79 kg

DRUGS (1)
  1. CHANTIX [Suspect]
     Indication: SMOKING CESSATION THERAPY
     Dosage: 1 MG BID PO
     Route: 048
     Dates: start: 20070901, end: 20071012

REACTIONS (11)
  - ANXIETY [None]
  - ASTHMA [None]
  - CHEST DISCOMFORT [None]
  - CRYING [None]
  - DEPRESSED MOOD [None]
  - DIARRHOEA [None]
  - FEELING ABNORMAL [None]
  - NAUSEA [None]
  - NERVOUSNESS [None]
  - PANIC REACTION [None]
  - SLEEP DISORDER [None]
